FAERS Safety Report 14788508 (Version 2)
Quarter: 2018Q2

REPORT INFORMATION
  Report Type: Report from Study
  Country: ES (occurrence: ES)
  Receive Date: 20180423
  Receipt Date: 20180607
  Transmission Date: 20180711
  Serious: Yes (Life-Threatening, Hospitalization)
  Sender: FDA-Public Use
  Company Number: ES-ROCHE-2106950

PATIENT
  Age: 52 Year
  Sex: Female
  Weight: 84 kg

DRUGS (1)
  1. TOCILIZUMAB. [Suspect]
     Active Substance: TOCILIZUMAB
     Indication: RHEUMATOID ARTHRITIS
     Dosage: 162 MG / SEMANA
     Route: 058
     Dates: start: 20150630, end: 20161214

REACTIONS (1)
  - Duodenal perforation [Recovered/Resolved]

NARRATIVE: CASE EVENT DATE: 20161221
